FAERS Safety Report 7532979-3 (Version None)
Quarter: 2011Q2

REPORT INFORMATION
  Report Type: 
  Country: None (occurrence: None)
  Receive Date: 20110608
  Receipt Date: 20110526
  Transmission Date: 20111010
  Serious: Yes (Other)
  Sender: FDA-Public Use
  Company Number: CA-JNJFOC-20100801281

PATIENT
  Sex: Female
  Weight: 66 kg

DRUGS (7)
  1. ASPIRIN [Concomitant]
  2. CALCIUM CARBONATE [Concomitant]
  3. REMICADE [Suspect]
     Indication: RHEUMATOID ARTHRITIS
     Route: 042
     Dates: start: 20000725
  4. PLAVIX [Concomitant]
  5. NORVASC [Concomitant]
  6. CRESTOR [Concomitant]
  7. PLAQUENIL [Concomitant]

REACTIONS (3)
  - LUMBAR VERTEBRAL FRACTURE [None]
  - FALL [None]
  - HAND FRACTURE [None]
